FAERS Safety Report 5904257-7 (Version None)
Quarter: 2008Q3

REPORT INFORMATION
  Report Type: 
  Country: None (occurrence: None)
  Receive Date: 20080909
  Receipt Date: 20080422
  Transmission Date: 20090109
  Serious: Yes (Hospitalization)
  Sender: FDA-Public Use
  Company Number: 163-20785-08031493

PATIENT
  Age: 51 Year
  Sex: Male

DRUGS (6)
  1. THALOMID [Suspect]
     Indication: ERYTHEMA NODOSUM
     Dosage: 300MG/200MG/100MG, DAY1/X3DAYS/DAILY AT BEDTIME, ORAL
     Route: 048
     Dates: start: 20080228
  2. ASPIRIN [Concomitant]
  3. PREDNISONE [Concomitant]
  4. ANTIBIOTICS (ANTIBIOTICS) [Concomitant]
  5. ADVAIR DISKUS 100/50 [Concomitant]
  6. SPIRIVA [Concomitant]

REACTIONS (1)
  - MYOCARDIAL INFARCTION [None]
